FAERS Safety Report 6723113-8 (Version None)
Quarter: 2010Q2

REPORT INFORMATION
  Report Type: 
  Country: None (occurrence: None)
  Receive Date: 20100513
  Receipt Date: 20100503
  Transmission Date: 20101027
  Serious: Yes (Hospitalization, Other)
  Sender: FDA-Public Use
  Company Number: US-BAYER-201014291NA

PATIENT
  Age: 25 Year
  Sex: Female
  Weight: 65 kg

DRUGS (8)
  1. YAZ [Suspect]
     Indication: VAGINAL HAEMORRHAGE
     Route: 048
     Dates: start: 20071116, end: 20080217
  2. YASMIN [Suspect]
     Indication: VAGINAL HAEMORRHAGE
     Route: 048
     Dates: start: 20070608, end: 20071116
  3. SALINE SOLUTIONS [Concomitant]
     Dosage: 120 ML/HOUR FOR 12 HOURS THEN 80ML/HR
     Route: 042
     Dates: start: 20080201, end: 20080201
  4. IBUPROFEN [Concomitant]
     Route: 065
     Dates: start: 20080201, end: 20080201
  5. ZOFRAN [Concomitant]
     Route: 065
     Dates: start: 20080201, end: 20080201
  6. GI PROPHYLAXIS MEDICATION [Concomitant]
  7. IRON SUPPLEMENT [Concomitant]
     Indication: ANAEMIA
     Route: 065
     Dates: start: 20080201
  8. MICRONOR [Concomitant]
     Indication: DYSMENORRHOEA
     Route: 048
     Dates: start: 20080408

REACTIONS (4)
  - DEEP VEIN THROMBOSIS [None]
  - DYSPNOEA [None]
  - PLEURITIC PAIN [None]
  - PULMONARY EMBOLISM [None]
